FAERS Safety Report 13257102 (Version 1)
Quarter: 2017Q1

REPORT INFORMATION
  Report Type: Spontaneous
  Country: FR (occurrence: FR)
  Receive Date: 20170221
  Receipt Date: 20170221
  Transmission Date: 20170428
  Serious: Yes (Hospitalization)
  Sender: FDA-Public Use
  Company Number: FR-ASTRAZENECA-2017SE17333

PATIENT
  Age: 86 Year
  Sex: Male

DRUGS (4)
  1. XARELTO [Suspect]
     Active Substance: RIVAROXABAN
     Indication: ATRIAL FIBRILLATION
     Route: 048
  2. HEMIGOXINE NATIVELLE [Suspect]
     Active Substance: DIGOXIN
     Route: 048
  3. PERMIXON [Suspect]
     Active Substance: SAW PALMETTO
     Route: 048
  4. INEXIUM [Suspect]
     Active Substance: ESOMEPRAZOLE
     Route: 048

REACTIONS (1)
  - Coombs positive haemolytic anaemia [Recovering/Resolving]

NARRATIVE: CASE EVENT DATE: 20170112
